FAERS Safety Report 9840771 (Version 1)
Quarter: 2013Q4

REPORT INFORMATION
  Report Type: Spontaneous
  Country: US (occurrence: None)
  Receive Date: 20131211
  Receipt Date: 20131211
  Transmission Date: 20140711
  Serious: Yes (Life-Threatening)
  Sender: FDA-Public Use
  Company Number: SPV1-2012-01041

PATIENT
  Age: 54 Year
  Sex: Female
  Weight: 90.7 kg

DRUGS (1)
  1. VYVANSE (LISDEXAMFETAMINE DIMESYLATE) CAPSULE [Suspect]
     Indication: ATTENTION DEFICIT/HYPERACTIVITY DISORDER
     Dosage: 70MG 3 TIMES PER WK IN THE AM EVERY OTHER DAY OR LESS, ORAL
     Route: 048
     Dates: start: 20090303, end: 20090603

REACTIONS (3)
  - Headache [None]
  - Blood pressure increased [None]
  - Incorrect dose administered [None]
